FAERS Safety Report 19660315 (Version 1)
Quarter: 2021Q3

REPORT INFORMATION
  Report Type: Spontaneous
  Country: US (occurrence: US)
  Receive Date: 20210805
  Receipt Date: 20210805
  Transmission Date: 20211014
  Serious: Yes (Other)
  Sender: FDA-Public Use
  Company Number: None

PATIENT
  Age: 67 Year
  Sex: Male
  Weight: 101.25 kg

DRUGS (8)
  1. MONTELUKAST [Concomitant]
     Active Substance: MONTELUKAST SODIUM
  2. DILTIAZEM CD [Concomitant]
     Active Substance: DILTIAZEM
  3. WAL?ZYR 24 HOUR ALLERGY [Suspect]
     Active Substance: CETIRIZINE HYDROCHLORIDE
     Indication: SINUSITIS
     Dosage: ?          QUANTITY:1 TABLET(S);?
     Route: 048
     Dates: start: 20210729, end: 20210804
  4. ROSUVASTATIN. [Concomitant]
     Active Substance: ROSUVASTATIN
  5. BRUPROPION [Concomitant]
  6. BREO ELLIPTA [Concomitant]
     Active Substance: FLUTICASONE FUROATE\VILANTEROL TRIFENATATE
  7. FLUTICASONE. [Concomitant]
     Active Substance: FLUTICASONE
  8. WAL?ZYR (ZYRTEC) [Concomitant]

REACTIONS (3)
  - Insomnia [None]
  - Product physical issue [None]
  - Dyspnoea [None]

NARRATIVE: CASE EVENT DATE: 20210803
